FAERS Safety Report 15863186 (Version 4)
Quarter: 2019Q2

REPORT INFORMATION
  Report Type: Spontaneous
  Country: US (occurrence: US)
  Receive Date: 20190124
  Receipt Date: 20190410
  Transmission Date: 20190711
  Serious: Yes (Other)
  Sender: FDA-Public Use
  Company Number: US-BRISTOL-MYERS SQUIBB COMPANY-BMS-2019-006428

PATIENT
  Age: 40 Year
  Sex: Female
  Weight: 110.66 kg

DRUGS (1)
  1. ORENCIA [Suspect]
     Active Substance: ABATACEPT
     Indication: RHEUMATOID ARTHRITIS
     Dosage: 125 MG, QWK
     Route: 058
     Dates: start: 201812

REACTIONS (3)
  - Respiratory tract infection [Unknown]
  - Product dose omission [Unknown]
  - Adverse event [Unknown]

NARRATIVE: CASE EVENT DATE: 20190201
